FAERS Safety Report 9917773 (Version 3)
Quarter: 2014Q2

REPORT INFORMATION
  Report Type: Spontaneous
  Country: US (occurrence: US)
  Receive Date: 20140221
  Receipt Date: 20140501
  Transmission Date: 20141212
  Serious: No
  Sender: FDA-Public Use
  Company Number: US-PFIZER INC-2014051120

PATIENT
  Sex: Female

DRUGS (1)
  1. LYRICA [Suspect]
     Dosage: 150 MG, 3X/DAY

REACTIONS (6)
  - Pain [Unknown]
  - Drug ineffective [Unknown]
  - Burning sensation [Unknown]
  - Neuralgia [Unknown]
  - Pain in extremity [Unknown]
  - Paraesthesia [Unknown]
